FAERS Safety Report 9354342 (Version 2)
Quarter: 2013Q3

REPORT INFORMATION
  Report Type: Spontaneous
  Country: US (occurrence: US)
  Receive Date: 20130618
  Receipt Date: 20130807
  Transmission Date: 20140515
  Serious: Yes (Death, Hospitalization)
  Sender: FDA-Public Use
  Company Number: US-BRISTOL-MYERS SQUIBB COMPANY-19009844

PATIENT
  Age: 89 Year
  Sex: Female

DRUGS (13)
  1. SPRYCEL [Suspect]
     Indication: CHRONIC MYELOID LEUKAEMIA
     Route: 048
     Dates: start: 201301, end: 20130610
  2. CARVEDILOL [Concomitant]
  3. DIGOXIN [Concomitant]
  4. DIOVAN [Concomitant]
  5. FENTANYL PATCH [Concomitant]
  6. LANSOPRAZOLE [Concomitant]
  7. MVI [Concomitant]
  8. NIACIN [Concomitant]
  9. SIMVASTATIN [Concomitant]
  10. SPIRONOLACTONE [Concomitant]
  11. TORSEMIDE [Concomitant]
  12. WARFARIN [Concomitant]
  13. ZOFRAN [Concomitant]

REACTIONS (2)
  - Death [Fatal]
  - Sepsis [Unknown]
